FAERS Safety Report 17540598 (Version 2)
Quarter: 2020Q3

REPORT INFORMATION
  Report Type: Spontaneous
  Country: US (occurrence: US)
  Receive Date: 20200313
  Receipt Date: 20200727
  Transmission Date: 20201102
  Serious: Yes (Other)
  Sender: FDA-Public Use
  Company Number: US-ASTRAZENECA-2020SE34137

PATIENT
  Age: 28239 Day
  Sex: Male
  Weight: 76.2 kg

DRUGS (45)
  1. METFORMIN [Concomitant]
     Active Substance: METFORMIN HYDROCHLORIDE
     Dates: start: 20100113
  2. NASONEX [Concomitant]
     Active Substance: MOMETASONE FUROATE
  3. AZITHROMYCIN ANHYDROUS. [Concomitant]
     Active Substance: AZITHROMYCIN ANHYDROUS
     Dates: start: 20130225
  4. NEXIUM [Suspect]
     Active Substance: ESOMEPRAZOLE MAGNESIUM
     Indication: GASTROOESOPHAGEAL REFLUX DISEASE
     Route: 048
     Dates: start: 20120730
  5. OMEPRAZOLE. [Suspect]
     Active Substance: OMEPRAZOLE
     Indication: GASTROOESOPHAGEAL REFLUX DISEASE
     Route: 065
     Dates: start: 2014
  6. DIFLUCAN [Concomitant]
     Active Substance: FLUCONAZOLE
  7. VITAMIN D3 [Concomitant]
     Active Substance: CHOLECALCIFEROL
  8. VOLTAREN [Concomitant]
     Active Substance: DICLOFENAC SODIUM
  9. SYMBICORT [Concomitant]
     Active Substance: BUDESONIDE\FORMOTEROL FUMARATE DIHYDRATE
     Dates: start: 20140319
  10. PREDNISONE. [Concomitant]
     Active Substance: PREDNISONE
  11. SULFAMETHOXAZOLE [Concomitant]
     Active Substance: SULFAMETHOXAZOLE
     Dates: start: 20130723
  12. BENICAR [Concomitant]
     Active Substance: OLMESARTAN MEDOXOMIL
     Dates: start: 20110215
  13. QVAR [Concomitant]
     Active Substance: BECLOMETHASONE DIPROPIONATE
     Dates: start: 20110209
  14. NYSTATIN. [Concomitant]
     Active Substance: NYSTATIN
     Dates: start: 20110712
  15. SPIRIVA [Concomitant]
     Active Substance: TIOTROPIUM BROMIDE MONOHYDRATE
     Dates: start: 20111210
  16. BACTRIM [Concomitant]
     Active Substance: SULFAMETHOXAZOLE\TRIMETHOPRIM
  17. IPRATROPIUM [Concomitant]
     Active Substance: IPRATROPIUM
  18. VIAGRA [Concomitant]
     Active Substance: SILDENAFIL CITRATE
     Dates: start: 20110215
  19. RHINOCORT [Concomitant]
     Active Substance: BUDESONIDE
     Dates: start: 20090504
  20. LISINOPRIL. [Concomitant]
     Active Substance: LISINOPRIL
     Dates: start: 20090324
  21. MILK OF MAGNESIA [Concomitant]
     Active Substance: MAGNESIUM HYDROXIDE
  22. RANITIDINE. [Concomitant]
     Active Substance: RANITIDINE
     Dates: start: 20181005
  23. ALBUTEROL. [Concomitant]
     Active Substance: ALBUTEROL
     Dates: start: 20130225
  24. METHYLPREDNISOLONE. [Concomitant]
     Active Substance: METHYLPREDNISOLONE
     Dates: start: 20110131
  25. LEVAQUIN [Concomitant]
     Active Substance: LEVOFLOXACIN
     Dates: start: 20110911
  26. CLARITHROMYCIN. [Concomitant]
     Active Substance: CLARITHROMYCIN
     Dates: start: 20110216
  27. NEXIUM [Suspect]
     Active Substance: ESOMEPRAZOLE MAGNESIUM
     Indication: GASTROOESOPHAGEAL REFLUX DISEASE
     Route: 048
     Dates: start: 2000, end: 2017
  28. OMEPRAZOLE. [Suspect]
     Active Substance: OMEPRAZOLE
     Indication: GASTROOESOPHAGEAL REFLUX DISEASE
     Route: 065
     Dates: start: 20140204
  29. ZYRTEC [Concomitant]
     Active Substance: CETIRIZINE HYDROCHLORIDE
  30. DOXYCYCLINE. [Concomitant]
     Active Substance: DOXYCYCLINE
     Dates: start: 20110131
  31. XOPENEX [Concomitant]
     Active Substance: LEVALBUTEROL HYDROCHLORIDE
     Dates: start: 20100716
  32. NEXIUM [Suspect]
     Active Substance: ESOMEPRAZOLE MAGNESIUM
     Indication: GASTROOESOPHAGEAL REFLUX DISEASE
     Route: 048
     Dates: start: 20130723
  33. NEXIUM [Suspect]
     Active Substance: ESOMEPRAZOLE MAGNESIUM
     Indication: GASTROOESOPHAGEAL REFLUX DISEASE
     Route: 048
     Dates: start: 20090812
  34. LOSARTAN. [Concomitant]
     Active Substance: LOSARTAN
     Dates: start: 20130325
  35. SINGULAIR [Concomitant]
     Active Substance: MONTELUKAST SODIUM
     Dates: start: 20130403
  36. CIPROFLOXACIN. [Concomitant]
     Active Substance: CIPROFLOXACIN
     Dates: start: 20110712
  37. PROLENSA [Concomitant]
     Active Substance: BROMFENAC SODIUM
     Dates: start: 20180619
  38. OMEPRAZOLE. [Suspect]
     Active Substance: OMEPRAZOLE
     Indication: GASTROOESOPHAGEAL REFLUX DISEASE
     Route: 065
     Dates: start: 2015
  39. TRAMADOL. [Concomitant]
     Active Substance: TRAMADOL
     Indication: PAIN
     Dates: start: 20131204
  40. TUMS [Concomitant]
     Active Substance: CALCIUM CARBONATE
  41. ACETYLCYSTEINE. [Concomitant]
     Active Substance: ACETYLCYSTEINE
  42. LIPITOR [Concomitant]
     Active Substance: ATORVASTATIN CALCIUM
     Dates: start: 20090518
  43. ADVAIR HFA [Concomitant]
     Active Substance: FLUTICASONE PROPIONATE\SALMETEROL XINAFOATE
     Dates: start: 20130424
  44. DILTIAZEM. [Concomitant]
     Active Substance: DILTIAZEM
     Dates: start: 20110702
  45. DUREZOL [Concomitant]
     Active Substance: DIFLUPREDNATE
     Dates: start: 20180619

REACTIONS (2)
  - Renal failure [Unknown]
  - Chronic kidney disease [Not Recovered/Not Resolved]

NARRATIVE: CASE EVENT DATE: 20190403
